FAERS Safety Report 9895728 (Version 1)
Quarter: 2014Q1

REPORT INFORMATION
  Report Type: Spontaneous
  Country: US (occurrence: US)
  Receive Date: 20140213
  Receipt Date: 20140213
  Transmission Date: 20141002
  Serious: No
  Sender: FDA-Public Use
  Company Number: US-BRISTOL-MYERS SQUIBB COMPANY-18978429

PATIENT
  Age: 61 Year
  Sex: Female
  Weight: 77.1 kg

DRUGS (14)
  1. ABATACEPT SUBQ INJECTION 125MG/ML [Suspect]
     Route: 058
  2. CYCLOBENZAPRINE [Concomitant]
     Dosage: TABLET
  3. AMITRIPTYLINE [Concomitant]
     Dosage: TABS
  4. PERCOCET [Concomitant]
     Dosage: TABS?1DF: 5-325MG
  5. BREWERS YEAST [Concomitant]
     Dosage: TABS
  6. YUCCA [Concomitant]
     Dosage: CAPS
  7. VITAMIN C [Concomitant]
     Dosage: CAPS
  8. OMEPRAZOLE [Concomitant]
     Dosage: CAPS
  9. GUAIFENESIN [Concomitant]
     Dosage: TABS
  10. ALAVERT [Concomitant]
     Dosage: TABS
  11. VITAMIN B6 [Concomitant]
     Dosage: TABS?1000CR
  12. PROBIOTICA [Concomitant]
     Dosage: CAP
  13. VITAMIN D [Concomitant]
     Dosage: TAB 400 UNIT
  14. ADVAIR DISKUS [Concomitant]
     Dosage: AER 500/50

REACTIONS (3)
  - Contusion [Unknown]
  - Gingival pain [Unknown]
  - Nasopharyngitis [Unknown]
